FAERS Safety Report 11785928 (Version 5)
Quarter: 2016Q2

REPORT INFORMATION
  Report Type: Report from Study
  Country: US (occurrence: US)
  Receive Date: 20151130
  Receipt Date: 20160425
  Transmission Date: 20160815
  Serious: Yes (Other)
  Sender: FDA-Public Use
  Company Number: US-PFIZER INC-2015399177

PATIENT
  Age: 61 Year
  Sex: Male
  Weight: 118.5 kg

DRUGS (15)
  1. MOTRIN [Concomitant]
     Active Substance: IBUPROFEN
     Indication: NECK PAIN
     Dosage: UNK
     Dates: start: 20110526
  2. COLCHICINE. [Concomitant]
     Active Substance: COLCHICINE
     Indication: GOUT
     Dosage: UNK
     Dates: start: 201001
  3. MOTRIN [Concomitant]
     Active Substance: IBUPROFEN
     Indication: HEADACHE
  4. XELJANZ [Suspect]
     Active Substance: TOFACITINIB CITRATE
     Indication: PSORIASIS
     Dosage: 5 OR 10 MG BID
     Route: 048
     Dates: start: 20120613, end: 20130219
  5. XELJANZ [Suspect]
     Active Substance: TOFACITINIB CITRATE
     Dosage: 5 MG BID
     Route: 048
     Dates: start: 20140217, end: 20140514
  6. XELJANZ [Suspect]
     Active Substance: TOFACITINIB CITRATE
     Dosage: 10 MG BID
     Route: 048
     Dates: start: 20140515, end: 20151117
  7. INDOCIN [Concomitant]
     Active Substance: INDOMETHACIN\INDOMETHACIN SODIUM
     Indication: GOUT
     Dosage: UNK
     Dates: start: 2006
  8. SLOW RELEASE FERROUS FUMARATE [Concomitant]
     Indication: SUPPLEMENTATION THERAPY
     Dosage: UNK
     Dates: start: 20150225
  9. CIALIS [Concomitant]
     Active Substance: TADALAFIL
     Indication: ERECTILE DYSFUNCTION
     Dosage: UNK
     Dates: start: 20100105
  10. ONE-A-DAY VITAMIN [Concomitant]
     Indication: SUPPLEMENTATION THERAPY
     Dosage: SENIOR MEN 50+ HEALTHY ADVANTAGE
     Dates: start: 201504
  11. DEPO-MEDROL + LIDOCAINE [Concomitant]
     Active Substance: LIDOCAINE HYDROCHLORIDE\METHYLPREDNISOLONE ACETATE
     Indication: NECK PAIN
     Dosage: ONCE
     Route: 008
     Dates: start: 20150427, end: 20150427
  12. XELJANZ [Suspect]
     Active Substance: TOFACITINIB CITRATE
     Dosage: 10 MG BID
     Route: 048
     Dates: start: 20130220, end: 20140216
  13. GLUCOPHAGE [Concomitant]
     Active Substance: METFORMIN HYDROCHLORIDE
     Indication: TYPE 2 DIABETES MELLITUS
     Dosage: UNK
     Dates: start: 2003
  14. AMARYL [Concomitant]
     Active Substance: GLIMEPIRIDE
     Indication: TYPE 2 DIABETES MELLITUS
     Dosage: UNK
     Dates: start: 2003
  15. ZOCOR [Concomitant]
     Active Substance: SIMVASTATIN
     Indication: HYPERLIPIDAEMIA
     Dosage: UNK
     Dates: start: 201105

REACTIONS (1)
  - Small intestine adenocarcinoma [Unknown]

NARRATIVE: CASE EVENT DATE: 20151113
